FAERS Safety Report 18569778 (Version 1)
Quarter: 2020Q4

REPORT INFORMATION
  Report Type: Spontaneous
  Country: US (occurrence: US)
  Receive Date: 20201202
  Receipt Date: 20201202
  Transmission Date: 20210114
  Serious: Yes (Hospitalization)
  Sender: FDA-Public Use
  Company Number: None

PATIENT
  Age: 47 Year
  Sex: Male
  Weight: 108.9 kg

DRUGS (1)
  1. BAMLANIVIMAB. [Suspect]
     Active Substance: BAMLANIVIMAB
     Indication: COVID-19
     Dosage: ?          OTHER FREQUENCY:ONCE;?
     Route: 041
     Dates: start: 20201125, end: 20201125

REACTIONS (13)
  - Pyrexia [None]
  - Chills [None]
  - Abdominal pain upper [None]
  - Nausea [None]
  - Vomiting [None]
  - Fatigue [None]
  - Productive cough [None]
  - Hypoxia [None]
  - Diarrhoea [None]
  - Pain [None]
  - Anosmia [None]
  - Dyspnoea [None]
  - Ageusia [None]

NARRATIVE: CASE EVENT DATE: 20201127
